FAERS Safety Report 4312579-9 (Version None)
Quarter: 2004Q1

REPORT INFORMATION
  Report Type: 
  Country: None (occurrence: None)
  Receive Date: 20040303
  Receipt Date: 20040219
  Transmission Date: 20041129
  Serious: Yes (Other)
  Sender: FDA-Public Use
  Company Number: US-JNJFOC-20030801912

PATIENT
  Age: 35 Year
  Sex: Female
  Weight: 57.1532 kg

DRUGS (4)
  1. REMICADE [Suspect]
     Indication: CROHN'S DISEASE
     Dosage: 5 MG/KG, 1 IN 1 DAY, INTRAVENOUS
     Route: 042
     Dates: start: 20030501
  2. REMICADE [Suspect]
     Indication: CROHN'S DISEASE
     Dosage: 5 MG/KG, 1 IN 1 DAY, INTRAVENOUS
     Route: 042
     Dates: start: 20030601
  3. REMICADE [Suspect]
     Indication: CROHN'S DISEASE
     Dosage: 5 MG/KG, 1 IN 1 DAY, INTRAVENOUS
     Route: 042
     Dates: start: 20030701
  4. PREDNISONE [Concomitant]

REACTIONS (10)
  - ABORTION SPONTANEOUS [None]
  - ANTINUCLEAR ANTIBODY POSITIVE [None]
  - COMPLICATIONS OF MATERNAL EXPOSURE TO THERAPEUTIC DRUGS [None]
  - CROHN'S DISEASE [None]
  - DRUG INEFFECTIVE [None]
  - FIBROADENOMA OF BREAST [None]
  - LIP ULCERATION [None]
  - MATERNAL DRUGS AFFECTING FOETUS [None]
  - ORTHOPEDIC PROCEDURE [None]
  - PREGNANCY [None]
